FAERS Safety Report 9116055 (Version 2)
Quarter: 2015Q1

REPORT INFORMATION
  Report Type: Report from Study
  Country: MX (occurrence: MX)
  Receive Date: 20130225
  Receipt Date: 20150317
  Transmission Date: 20150721
  Serious: Yes (Hospitalization)
  Sender: FDA-Public Use
  Company Number: PHHY2012MX036160

PATIENT
  Age: 67 Year
  Sex: Female

DRUGS (9)
  1. SEREVENT [Concomitant]
     Active Substance: SALMETEROL XINAFOATE
     Indication: ASTHMA
     Dosage: 2 DF, UNK
     Route: 065
     Dates: start: 201211
  2. LOSARTAN [Concomitant]
     Active Substance: LOSARTAN
     Indication: PRODUCT USED FOR UNKNOWN INDICATION
     Route: 065
  3. FORADIL [Suspect]
     Active Substance: FORMOTEROL FUMARATE
     Dosage: 0.012 MG, QD
     Route: 065
  4. FORADIL [Suspect]
     Active Substance: FORMOTEROL FUMARATE
     Indication: ASTHMA
     Dosage: 2 DF, QD
     Route: 055
     Dates: start: 201011
  5. MIFLONIDE [Suspect]
     Active Substance: BUDESONIDE
     Indication: ASTHMA
     Dosage: UNK
     Route: 065
     Dates: start: 201011
  6. RHINOCORT [Concomitant]
     Active Substance: BUDESONIDE
     Indication: ASTHMA
     Dosage: 2 DF DAILY
     Route: 065
     Dates: start: 201211
  7. MIFLONIDE [Concomitant]
     Active Substance: BUDESONIDE
     Indication: PRODUCT USED FOR UNKNOWN INDICATION
     Route: 065
  8. FORADIL [Suspect]
     Active Substance: FORMOTEROL FUMARATE
     Dosage: 1 DF, UNK
     Route: 055
     Dates: start: 2011, end: 201212
  9. AEROSOL [Concomitant]
     Indication: ASTHMA
     Dosage: 2 DF DAILY
     Route: 065
     Dates: start: 201011

REACTIONS (12)
  - Gastritis [Unknown]
  - Dyspnoea [Unknown]
  - Agitation [Unknown]
  - Malaise [Not Recovered/Not Resolved]
  - Productive cough [Not Recovered/Not Resolved]
  - Decreased appetite [Not Recovered/Not Resolved]
  - Abdominal discomfort [Unknown]
  - Asthma [Unknown]
  - Wheezing [Unknown]
  - Movement disorder [Unknown]
  - Chest discomfort [Not Recovered/Not Resolved]
  - Feeding disorder [Not Recovered/Not Resolved]

NARRATIVE: CASE EVENT DATE: 201204
